FAERS Safety Report 13704579 (Version 2)
Quarter: 2017Q3

REPORT INFORMATION
  Report Type: Spontaneous
  Country: AT (occurrence: AT)
  Receive Date: 20170630
  Receipt Date: 20170706
  Transmission Date: 20171127
  Serious: Yes (Death)
  Sender: FDA-Public Use
  Company Number: AT-ROCHE-1956361

PATIENT
  Age: 69 Year
  Sex: Female
  Weight: 40 kg

DRUGS (3)
  1. OVASTAT [Suspect]
     Active Substance: TREOSULFAN
     Indication: OVARIAN CANCER METASTATIC
     Route: 048
     Dates: start: 20160726, end: 20170428
  2. AVASTIN [Suspect]
     Active Substance: BEVACIZUMAB
     Indication: OVARIAN CANCER METASTATIC
     Route: 042
     Dates: start: 20160726, end: 20170608
  3. UROSIN (AUSTRIA) [Concomitant]
     Dosage: 1/2 PER DAY
     Route: 065

REACTIONS (3)
  - Peritonitis [Fatal]
  - Small intestinal perforation [Fatal]
  - Sepsis [Fatal]

NARRATIVE: CASE EVENT DATE: 20170611
